FAERS Safety Report 11115436 (Version 1)
Quarter: 2015Q2

REPORT INFORMATION
  Report Type: Spontaneous
  Country: US (occurrence: None)
  Receive Date: 20150514
  Receipt Date: 20150514
  Transmission Date: 20150821
  Serious: Yes (Hospitalization)
  Sender: FDA-Public Use
  Company Number: None

PATIENT
  Age: 72 Year
  Sex: Male
  Weight: 70.5 kg

DRUGS (2)
  1. PAROXETINE [Suspect]
     Active Substance: PAROXETINE\PAROXETINE HYDROCHLORIDE
     Indication: SEROTONIN SYNDROME
     Route: 048
     Dates: start: 20140324, end: 20150303
  2. PAROXETINE [Suspect]
     Active Substance: PAROXETINE\PAROXETINE HYDROCHLORIDE
     Indication: DEPRESSION
     Route: 048
     Dates: start: 20140324, end: 20150303

REACTIONS (8)
  - Serotonin syndrome [None]
  - Psychomotor hyperactivity [None]
  - Diarrhoea [None]
  - Encephalopathy [None]
  - Muscle rigidity [None]
  - Tremor [None]
  - Myoclonus [None]
  - Hypertonia [None]

NARRATIVE: CASE EVENT DATE: 20150212
